FAERS Safety Report 18042758 (Version 1)
Quarter: 2020Q3

REPORT INFORMATION
  Report Type: Spontaneous
  Country: ES (occurrence: ES)
  Receive Date: 20200720
  Receipt Date: 20200720
  Transmission Date: 20201103
  Serious: Yes (Other)
  Sender: FDA-Public Use
  Company Number: NVSC2020ES199907

PATIENT
  Age: 62 Year
  Sex: Female
  Weight: 84 kg

DRUGS (2)
  1. HYDROCHLOROTHIAZIDE,LOSARTAN [Suspect]
     Active Substance: HYDROCHLOROTHIAZIDE\LOSARTAN
     Indication: HYPERTENSION
     Dosage: 1 DF, QD
     Route: 048
     Dates: start: 2011
  2. HYDROCHLOROTHIAZIDE,LOSARTAN [Suspect]
     Active Substance: HYDROCHLOROTHIAZIDE\LOSARTAN
     Dosage: 2 DF, QD
     Route: 048
     Dates: start: 201607, end: 20200609

REACTIONS (4)
  - Ligament disorder [Recovering/Resolving]
  - Vertigo [Recovered/Resolved]
  - Thrombocytopenia [Recovered/Resolved]
  - Arthralgia [Recovering/Resolving]

NARRATIVE: CASE EVENT DATE: 201606
